FAERS Safety Report 10654878 (Version 1)
Quarter: 2014Q4

REPORT INFORMATION
  Report Type: Spontaneous
  Country: US (occurrence: None)
  Receive Date: 20141215
  Receipt Date: 20141215
  Transmission Date: 20150529
  Serious: Yes (Hospitalization, Other)
  Sender: FDA-Public Use
  Company Number: None

PATIENT
  Age: 19 Year
  Sex: Female
  Weight: 99 kg

DRUGS (1)
  1. PROZAC [Suspect]
     Active Substance: FLUOXETINE HYDROCHLORIDE
     Indication: MIGRAINE
     Dosage: 20MG, 28 PILLS, TWICE DAILY, TAKEN BY MOUTH
     Route: 048
     Dates: start: 20131111, end: 20131226

REACTIONS (7)
  - Nausea [None]
  - Decreased appetite [None]
  - Mood swings [None]
  - Road traffic accident [None]
  - Drug ineffective [None]
  - Serotonin syndrome [None]
  - Dizziness [None]

NARRATIVE: CASE EVENT DATE: 20131212
